FAERS Safety Report 20690998 (Version 1)
Quarter: 2022Q2

REPORT INFORMATION
  Report Type: Report from Study
  Country: CN (occurrence: None)
  Receive Date: 20220408
  Receipt Date: 20220408
  Transmission Date: 20220721
  Serious: Yes (Hospitalization)
  Sender: FDA-Public Use
  Company Number: CN-Eisai Medical Research-EC-2022-112228

PATIENT
  Age: 68 Year
  Sex: Female
  Weight: 85 kg

DRUGS (7)
  1. LENVATINIB [Suspect]
     Active Substance: LENVATINIB
     Indication: Hepatocellular carcinoma
     Route: 048
     Dates: start: 20210309, end: 20210317
  2. INVESTIGATIONAL PRODUCT [Suspect]
     Active Substance: INVESTIGATIONAL PRODUCT
     Indication: Hepatocellular carcinoma
     Route: 042
     Dates: start: 20210309, end: 2021
  3. ENTECAVIR [Concomitant]
     Active Substance: ENTECAVIR
  4. TENOFOVIR DISOPROXIL FUMARATE [Concomitant]
     Active Substance: TENOFOVIR DISOPROXIL FUMARATE
  5. TELMISARTAN [Concomitant]
     Active Substance: TELMISARTAN
  6. DAPAGLIFLOZIN [Concomitant]
     Active Substance: DAPAGLIFLOZIN
  7. LORATADINE [Concomitant]
     Active Substance: LORATADINE

REACTIONS (5)
  - Eructation [Unknown]
  - Platelet count decreased [Not Recovered/Not Resolved]
  - Blood albumin decreased [Recovering/Resolving]
  - Abdominal pain upper [Unknown]
  - Epistaxis [Unknown]

NARRATIVE: CASE EVENT DATE: 20210314
